FAERS Safety Report 23867863 (Version 3)
Quarter: 2025Q1

REPORT INFORMATION
  Report Type: Report from Study
  Country: CA (occurrence: CA)
  Receive Date: 20240517
  Receipt Date: 20250211
  Transmission Date: 20250408
  Serious: No
  Sender: SK LIFE SCIENCE
  Company Number: CA-SK LIFE SCIENCE, INC.-SKPVG-2024-001021

PATIENT

DRUGS (11)
  1. XCOPRI [Suspect]
     Active Substance: CENOBAMATE
     Indication: Partial seizures
     Dosage: 12.5 MILLIGRAM,  DAILY
     Route: 048
     Dates: start: 20240124, end: 2024
  2. XCOPRI [Suspect]
     Active Substance: CENOBAMATE
     Indication: Adjuvant therapy
     Dosage: 25 MILLIGRAM,  DAILY
     Route: 048
     Dates: start: 2024, end: 2024
  3. XCOPRI [Suspect]
     Active Substance: CENOBAMATE
     Dosage: 50 MILLIGRAM,  DAILY
     Route: 048
     Dates: start: 2024, end: 2024
  4. XCOPRI [Suspect]
     Active Substance: CENOBAMATE
     Dosage: 100 MILLIGRAM,  DAILY
     Route: 048
     Dates: start: 2024, end: 2024
  5. XCOPRI [Suspect]
     Active Substance: CENOBAMATE
     Dosage: 150 MILLIGRAM,  DAILY
     Route: 048
     Dates: start: 2024, end: 2024
  6. XCOPRI [Suspect]
     Active Substance: CENOBAMATE
     Dosage: 200 MILLIGRAM,  DAILY
     Route: 048
     Dates: start: 2024, end: 2024
  7. XCOPRI [Suspect]
     Active Substance: CENOBAMATE
     Dosage: 225 MILLIGRAM,  DAILY
     Route: 048
     Dates: start: 2024, end: 2024
  8. XCOPRI [Suspect]
     Active Substance: CENOBAMATE
     Dosage: 250 MILLIGRAM,  DAILY
     Route: 048
     Dates: start: 2024
  9. LAMOTRIGINE [Concomitant]
     Active Substance: LAMOTRIGINE
     Indication: Product used for unknown indication
     Route: 065
     Dates: end: 2024
  10. CLOBAZAM [Concomitant]
     Active Substance: CLOBAZAM
     Indication: Product used for unknown indication
     Dosage: 10 MILLIGRAM, QHS
     Route: 065
  11. DIVALPROEX SODIUM [Concomitant]
     Active Substance: DIVALPROEX SODIUM
     Indication: Product used for unknown indication
     Route: 065
     Dates: end: 2024

REACTIONS (1)
  - Off label use [Unknown]

NARRATIVE: CASE EVENT DATE: 20240101
